FAERS Safety Report 5884169-8 (Version None)
Quarter: 2008Q3

REPORT INFORMATION
  Report Type: 
  Country: None (occurrence: None)
  Receive Date: 20080911
  Receipt Date: 20080827
  Transmission Date: 20090109
  Serious: Yes (Death)
  Sender: FDA-Public Use
  Company Number: 08-215

PATIENT
  Age: 50 Year
  Sex: Female

DRUGS (3)
  1. FAZACLO ODT [Suspect]
     Indication: SCHIZOPHRENIA, PARANOID TYPE
     Dosage: 150 MG BID PO
     Route: 048
     Dates: start: 20080806, end: 20080824
  2. GEODON INJECTABLE [Concomitant]
  3. HALDOL DECANOTE [Concomitant]

REACTIONS (1)
  - CHOKING [None]
